FAERS Safety Report 23672319 (Version 1)
Quarter: 2024Q1

REPORT INFORMATION
  Report Type: Spontaneous
  Country: FR (occurrence: FR)
  Receive Date: 20240326
  Receipt Date: 20240326
  Transmission Date: 20240410
  Serious: Yes (Hospitalization)
  Sender: FDA-Public Use
  Company Number: None

PATIENT
  Age: 84 Year
  Sex: Female
  Weight: 55 kg

DRUGS (3)
  1. IMBRUVICA [Interacting]
     Active Substance: IBRUTINIB
     Indication: Cold type haemolytic anaemia
     Route: 048
     Dates: start: 202401, end: 20240220
  2. GLIVEC [Suspect]
     Active Substance: IMATINIB MESYLATE
     Indication: Gastrointestinal stromal tumour
     Route: 048
     Dates: start: 202401, end: 20240220
  3. GLIVEC [Suspect]
     Active Substance: IMATINIB MESYLATE
     Indication: Gastrointestinal stromal tumour
     Route: 048
     Dates: start: 202304, end: 202401

REACTIONS (3)
  - Drug interaction [Recovering/Resolving]
  - Small intestinal haemorrhage [Recovering/Resolving]
  - Tumour haemorrhage [Recovering/Resolving]

NARRATIVE: CASE EVENT DATE: 20240220
